FAERS Safety Report 23375755 (Version 6)
Quarter: 2024Q2

REPORT INFORMATION
  Report Type: Report from Study
  Country: US (occurrence: US)
  Receive Date: 20240107
  Receipt Date: 20240424
  Transmission Date: 20240716
  Serious: No
  Sender: FDA-Public Use
  Company Number: US-AstraZeneca-CH-00538644A

PATIENT
  Sex: Female

DRUGS (4)
  1. STRENSIQ [Suspect]
     Active Substance: ASFOTASE ALFA
     Indication: Product used for unknown indication
     Dosage: UNK
     Route: 065
  2. CALCIUM [Concomitant]
     Active Substance: CALCIUM
     Indication: Product used for unknown indication
     Dosage: UNK
     Route: 065
  3. VITAMIN D3 [Concomitant]
     Active Substance: CHOLECALCIFEROL
     Indication: Product used for unknown indication
     Dosage: UNK
     Route: 065
  4. JWH-018 [Concomitant]
     Active Substance: JWH-018
     Indication: Product used for unknown indication
     Dosage: UNK
     Route: 065

REACTIONS (12)
  - Seasonal allergy [Unknown]
  - Decreased appetite [Unknown]
  - Weight decreased [Not Recovered/Not Resolved]
  - Arthropathy [Unknown]
  - Muscle disorder [Unknown]
  - Foot fracture [Not Recovered/Not Resolved]
  - Osteoporosis [Unknown]
  - Nasopharyngitis [Unknown]
  - Mycotic allergy [Unknown]
  - Back pain [Unknown]
  - Injection site pain [Unknown]
  - Illness [Unknown]
